FAERS Safety Report 4624751-9 (Version None)
Quarter: 2005Q1

REPORT INFORMATION
  Report Type: 
  Country: None (occurrence: None)
  Receive Date: 20050107
  Receipt Date: 20041026
  Transmission Date: 20050727
  Serious: No
  Sender: FDA-Public Use
  Company Number: 235308K04USA

PATIENT
  Age: 35 Year
  Sex: Female

DRUGS (1)
  1. REBIF [Suspect]
     Indication: MULTIPLE SCLEROSIS
     Dates: start: 20041022

REACTIONS (4)
  - BURNING SENSATION [None]
  - DIZZINESS [None]
  - DYSPNOEA [None]
  - PERIPHERAL COLDNESS [None]
